FAERS Safety Report 6282915-5 (Version None)
Quarter: 2009Q3

REPORT INFORMATION
  Report Type: 
  Country: None (occurrence: None)
  Receive Date: 20090724
  Receipt Date: 20090714
  Transmission Date: 20100115
  Serious: Yes (Hospitalization, Disabling)
  Sender: FDA-Public Use
  Company Number: US-MERCK-0904USA00245

PATIENT
  Age: 51 Year
  Sex: Female

DRUGS (4)
  1. FOSAMAX [Suspect]
     Indication: OSTEOPOROSIS
     Route: 048
     Dates: start: 19980101, end: 20071212
  2. FOSAMAX [Suspect]
     Route: 048
     Dates: start: 20080110, end: 20080801
  3. FOSAMAX [Suspect]
     Route: 048
     Dates: end: 20030501
  4. LEVOTHROID [Concomitant]
     Indication: HYPOTHYROIDISM
     Route: 065
     Dates: start: 19680101

REACTIONS (23)
  - ANXIETY [None]
  - ANXIETY POSTOPERATIVE [None]
  - ARTHRALGIA [None]
  - BLOOD CHOLESTEROL INCREASED [None]
  - DRUG HYPERSENSITIVITY [None]
  - FALL [None]
  - FEMUR FRACTURE [None]
  - GASTROOESOPHAGEAL REFLUX DISEASE [None]
  - HYPERLIPIDAEMIA [None]
  - HYPERSENSITIVITY [None]
  - IMPAIRED HEALING [None]
  - LOW TURNOVER OSTEOPATHY [None]
  - MIGRAINE [None]
  - MUSCULOSKELETAL DISCOMFORT [None]
  - OSTEOARTHRITIS [None]
  - PROCEDURAL NAUSEA [None]
  - PSORIASIS [None]
  - SINUS HEADACHE [None]
  - SKIN LACERATION [None]
  - TOOTH DISORDER [None]
  - VARICOSE VEIN [None]
  - VIRAL INFECTION [None]
  - WHIPLASH INJURY [None]
